FAERS Safety Report 9587930 (Version 4)
Quarter: 2014Q2

REPORT INFORMATION
  Report Type: Report from Study
  Country: GB (occurrence: GB)
  Receive Date: 20131003
  Receipt Date: 20140410
  Transmission Date: 20141212
  Serious: Yes (Life-Threatening, Hospitalization, Other)
  Sender: FDA-Public Use
  Company Number: PHHO2013GB011179

PATIENT
  Sex: 0

DRUGS (12)
  1. AMN107 [Suspect]
     Indication: GASTROINTESTINAL STROMAL TUMOUR
     Dosage: 400 MG, QD
     Dates: start: 20100506, end: 20140120
  2. AMLODIPINE [Concomitant]
     Indication: HYPERTENSION
     Dosage: 10 MG, QD
     Dates: start: 20110714, end: 20140210
  3. ATORVASTATIN [Concomitant]
     Indication: HYPERCHOLESTEROLAEMIA
     Dosage: 40 MG, QD
     Dates: start: 20130409
  4. ATORVASTATIN [Concomitant]
     Indication: MYOCARDIAL ISCHAEMIA
     Dosage: 80 MG, QD
     Dates: start: 20131120, end: 20140210
  5. RAMIPRIL [Concomitant]
     Indication: HYPERTENSION
     Dosage: 10 MG, QD
     Dates: start: 20130409, end: 20140210
  6. RAMIPRIL [Concomitant]
     Indication: MYOCARDIAL ISCHAEMIA
  7. ASPIRIN [Concomitant]
     Indication: HYPERTENSION
     Dosage: 75 MG, QD
     Dates: start: 20130409
  8. ASPIRIN [Concomitant]
     Indication: MYOCARDIAL ISCHAEMIA
     Dosage: 75 MG, QD
     Dates: start: 20140130, end: 20140210
  9. CLOPIDOGREL [Concomitant]
     Indication: MYOCARDIAL ISCHAEMIA
     Dosage: 75 MG, QD
     Dates: start: 20140130, end: 20140210
  10. OMEPRAZOLE [Concomitant]
     Dosage: 20 MG, QD
     Dates: start: 20130415, end: 20140210
  11. INDAPAMIDE [Concomitant]
     Indication: HYPERTENSION
     Dosage: 2.5 MG, QD
     Dates: start: 20131120, end: 20140210
  12. IVABRADINE [Concomitant]
     Indication: HYPERTENSION
     Dosage: 5 MG, BID
     Dates: start: 20131120, end: 20140210

REACTIONS (2)
  - Coronary artery restenosis [Recovering/Resolving]
  - Coronary artery occlusion [Recovered/Resolved]
